FAERS Safety Report 10135969 (Version 1)
Quarter: 2014Q2

REPORT INFORMATION
  Report Type: Spontaneous
  Country: AT (occurrence: AT)
  Receive Date: 20140429
  Receipt Date: 20140429
  Transmission Date: 20141212
  Serious: Yes (Other)
  Sender: FDA-Public Use
  Company Number: AT-AMGEN INC.-AUTSP2014029780

PATIENT
  Age: 2 Year
  Sex: Female

DRUGS (1)
  1. NPLATE [Suspect]
     Indication: THROMBOCYTOPENIA
     Dosage: 2-5 MUG/KG, QWK
     Route: 065
     Dates: start: 201401

REACTIONS (3)
  - Purpura [Unknown]
  - Drug ineffective [Unknown]
  - Dry skin [Unknown]
